FAERS Safety Report 12811121 (Version 1)
Quarter: 2016Q4

REPORT INFORMATION
  Report Type: Spontaneous
  Country: US (occurrence: US)
  Receive Date: 20161005
  Receipt Date: 20161005
  Transmission Date: 20170207
  Serious: No
  Sender: FDA-Public Use
  Company Number: None

PATIENT
  Age: 28 Year
  Sex: Male
  Weight: 220 kg

DRUGS (10)
  1. ALL DAY GREENS MIX [Concomitant]
  2. HYOSCYAMINE SULFATE VIRTUS [Suspect]
     Active Substance: HYOSCYAMINE SULFATE
     Indication: ABDOMINAL PAIN UPPER
     Dosage: 2 PILLS AT MEAL TIMES PLACE UNDER TONGUE BY MOUTH?
     Route: 060
     Dates: start: 20160303, end: 20160926
  3. METHOCARBAMOL. [Concomitant]
     Active Substance: METHOCARBAMOL
  4. PANTOPRAZOLE [Concomitant]
     Active Substance: PANTOPRAZOLE SODIUM
  5. FIBER POWDER [Concomitant]
  6. OXYCODONE [Concomitant]
     Active Substance: OXYCODONE
  7. SUPER ENZYMES [Concomitant]
  8. TUMERIC [Concomitant]
     Active Substance: TURMERIC
  9. PROMETHAZINE [Concomitant]
     Active Substance: PROMETHAZINE\PROMETHAZINE HYDROCHLORIDE
  10. HYOSCYAMINE SULFATE VIRTUS [Suspect]
     Active Substance: HYOSCYAMINE SULFATE
     Indication: IRRITABLE BOWEL SYNDROME
     Dosage: 2 PILLS AT MEAL TIMES PLACE UNDER TONGUE BY MOUTH?
     Route: 060
     Dates: start: 20160303, end: 20160926

REACTIONS (9)
  - Fear [None]
  - Dizziness [None]
  - Pollakiuria [None]
  - Heart rate increased [None]
  - Fall [None]
  - Heart rate decreased [None]
  - Balance disorder [None]
  - Urinary retention [None]
  - Dry mouth [None]
